FAERS Safety Report 9033578 (Version 1)
Quarter: 2013Q1

REPORT INFORMATION
  Report Type: Spontaneous
  Country: AR (occurrence: AR)
  Receive Date: 20130128
  Receipt Date: 20130128
  Transmission Date: 20140127
  Serious: Yes (Other)
  Sender: FDA-Public Use
  Company Number: PHHY2013AR004883

PATIENT
  Sex: Male

DRUGS (3)
  1. DIOVAN [Suspect]
     Indication: HYPERTENSION
     Dosage: 1 DF 160MG DAILY
     Route: 048
  2. GALVUS [Suspect]
     Indication: DIABETES MELLITUS
     Dosage: 1 DF,1 TABLET DAILY
     Route: 048
  3. METFORMIN [Suspect]
     Indication: DIABETES MELLITUS

REACTIONS (3)
  - Pneumonia [Recovering/Resolving]
  - Pyrexia [Recovering/Resolving]
  - Feeling abnormal [Unknown]
